FAERS Safety Report 12407053 (Version 1)
Quarter: 2016Q2

REPORT INFORMATION
  Report Type: Spontaneous
  Country: JP (occurrence: JP)
  Receive Date: 20160526
  Receipt Date: 20160526
  Transmission Date: 20160815
  Serious: Yes (Other)
  Sender: FDA-Public Use
  Company Number: JP-JNJFOC-20160319359

PATIENT
  Age: 87 Year
  Sex: Female
  Weight: 61 kg

DRUGS (4)
  1. URAPIDIL [Concomitant]
     Active Substance: URAPIDIL
     Indication: DYSURIA
     Route: 048
     Dates: start: 20151119
  2. TAKEPRON [Concomitant]
     Active Substance: LANSOPRAZOLE
     Indication: PROPHYLAXIS AGAINST GASTROINTESTINAL ULCER
     Route: 048
     Dates: start: 20151111
  3. SENNOSIDE [Concomitant]
     Active Substance: SENNOSIDES
     Route: 048
  4. XARELTO [Suspect]
     Active Substance: RIVAROXABAN
     Indication: THROMBOSIS PROPHYLAXIS
     Route: 048
     Dates: start: 20151111

REACTIONS (3)
  - Subdural haematoma [Unknown]
  - Movement disorder [Unknown]
  - Pain in extremity [Unknown]

NARRATIVE: CASE EVENT DATE: 20160312
